FAERS Safety Report 11536968 (Version 1)
Quarter: 2015Q3

REPORT INFORMATION
  Report Type: Spontaneous
  Country: FR (occurrence: FR)
  Receive Date: 20150922
  Receipt Date: 20150922
  Transmission Date: 20151125
  Serious: Yes (Death)
  Sender: FDA-Public Use
  Company Number: FR-SA-2015SA142851

PATIENT
  Age: 80 Year
  Sex: Female

DRUGS (4)
  1. PLAVIX [Suspect]
     Active Substance: CLOPIDOGREL BISULFATE
     Indication: ANGIOPLASTY
     Route: 048
     Dates: end: 20150629
  2. MIANSERIN HYDROCHLORIDE [Concomitant]
     Active Substance: MIANSERIN HYDROCHLORIDE
  3. MONO TILDIEM LP [Concomitant]
     Active Substance: DILTIAZEM HYDROCHLORIDE
     Dosage: FORM: PROLONGED RELEASE CAPSULE
  4. PARIET [Concomitant]
     Active Substance: RABEPRAZOLE SODIUM

REACTIONS (3)
  - Cerebral haematoma [Fatal]
  - Status epilepticus [Fatal]
  - Meningorrhagia [Fatal]

NARRATIVE: CASE EVENT DATE: 20150629
